FAERS Safety Report 15128987 (Version 1)
Quarter: 2018Q3

REPORT INFORMATION
  Report Type: Spontaneous
  Country: US (occurrence: US)
  Receive Date: 20180711
  Receipt Date: 20180711
  Transmission Date: 20181010
  Serious: Yes (Hospitalization)
  Sender: FDA-Public Use
  Company Number: US-JNJFOC-20180637309

PATIENT
  Age: 69 Year
  Sex: Male
  Weight: 101 kg

DRUGS (11)
  1. IMBRUVICA [Suspect]
     Active Substance: IBRUTINIB
     Indication: B-CELL LYMPHOMA
     Route: 048
     Dates: start: 201805
  2. GABAPENTIN. [Concomitant]
     Active Substance: GABAPENTIN
  3. CIMETIDINE [Concomitant]
     Active Substance: CIMETIDINE
  4. IMBRUVICA [Suspect]
     Active Substance: IBRUTINIB
     Indication: B-CELL LYMPHOMA
     Route: 048
     Dates: start: 20170602, end: 201805
  5. TRAMADOL. [Concomitant]
     Active Substance: TRAMADOL
  6. DULCOLAX NOS [Concomitant]
     Active Substance: BISACODYL OR DOCUSATE SODIUM
  7. SERTRALINE [Concomitant]
     Active Substance: SERTRALINE HYDROCHLORIDE
  8. RAPAFLO [Concomitant]
     Active Substance: SILODOSIN
     Dates: end: 20180226
  9. ALPRAZOLAM. [Concomitant]
     Active Substance: ALPRAZOLAM
     Dates: end: 20180501
  10. MULTIVITAMINS [Concomitant]
     Active Substance: VITAMINS
  11. FINASTERIDE. [Concomitant]
     Active Substance: FINASTERIDE

REACTIONS (3)
  - Product use in unapproved indication [Unknown]
  - Off label use [Unknown]
  - Urinary tract infection [Unknown]

NARRATIVE: CASE EVENT DATE: 201805
